FAERS Safety Report 6523251-9 (Version None)
Quarter: 2009Q4

REPORT INFORMATION
  Report Type: 
  Country: None (occurrence: None)
  Receive Date: 20091231
  Receipt Date: 20091221
  Transmission Date: 20100525
  Serious: No
  Sender: FDA-Public Use
  Company Number: US-BIOGENIDEC-2009BI038371

PATIENT
  Age: 44 Year
  Sex: Female

DRUGS (9)
  1. AVONEX [Suspect]
     Indication: MULTIPLE SCLEROSIS
     Route: 030
     Dates: start: 20031007, end: 20040331
  2. AVONEX [Suspect]
     Route: 030
     Dates: start: 20090117, end: 20090101
  3. AVONEX [Suspect]
     Route: 030
     Dates: start: 20090101, end: 20091101
  4. PROZAC [Concomitant]
  5. KLONOPIN [Concomitant]
     Indication: ANXIETY
  6. SEROQUEL [Concomitant]
  7. PERCOCET [Concomitant]
     Indication: BACK PAIN
  8. SYNTHROID [Concomitant]
     Indication: THYROID DISORDER
     Route: 048
  9. VITAMINS [Concomitant]

REACTIONS (2)
  - BACK PAIN [None]
  - SPINAL DISORDER [None]
